FAERS Safety Report 10463826 (Version 7)
Quarter: 2015Q2

REPORT INFORMATION
  Report Type: Spontaneous
  Country: JP (occurrence: JP)
  Receive Date: 20140919
  Receipt Date: 20150428
  Transmission Date: 20150821
  Serious: Yes (Hospitalization, Other)
  Sender: FDA-Public Use
  Company Number: PHHY2014JP120868

PATIENT
  Age: 57 Year
  Sex: Female
  Weight: 59 kg

DRUGS (3)
  1. AROMASIN [Concomitant]
     Active Substance: EXEMESTANE
     Indication: BREAST CANCER RECURRENT
     Dosage: 25 MG, UNK
     Route: 048
     Dates: start: 20140822
  2. AFINITOR [Suspect]
     Active Substance: EVEROLIMUS
     Dosage: 5 MG, QD
     Route: 048
     Dates: start: 20141010
  3. AFINITOR [Suspect]
     Active Substance: EVEROLIMUS
     Indication: BREAST CANCER RECURRENT
     Dosage: 10 MG, QD
     Route: 048
     Dates: start: 20140822, end: 20140908

REACTIONS (14)
  - Interstitial lung disease [Recovering/Resolving]
  - Fatigue [Unknown]
  - Crepitations [Unknown]
  - Chest discomfort [Unknown]
  - Cystitis haemorrhagic [Recovered/Resolved]
  - Cough [Unknown]
  - Respiratory failure [Recovering/Resolving]
  - Hypoxia [Unknown]
  - Urinary retention [Unknown]
  - Pyrexia [Unknown]
  - Haematuria [Unknown]
  - Malaise [Unknown]
  - Wheezing [Unknown]
  - Dyspnoea [Recovering/Resolving]

NARRATIVE: CASE EVENT DATE: 20140908
